FAERS Safety Report 7526848-2 (Version None)
Quarter: 2011Q2

REPORT INFORMATION
  Report Type: 
  Country: None (occurrence: None)
  Receive Date: 20110606
  Receipt Date: 20110523
  Transmission Date: 20111010
  Serious: Yes (Other)
  Sender: FDA-Public Use
  Company Number: PHHY2011US44505

PATIENT
  Sex: Male

DRUGS (7)
  1. LISINOPRIL [Concomitant]
     Dosage: UNK
  2. OMEPRAZOLE [Concomitant]
     Dosage: UNK
  3. DILANTIN [Concomitant]
     Dosage: UNK
  4. GARLIC [Concomitant]
     Dosage: UNK
  5. LORAZEPAM [Concomitant]
     Dosage: UNK
  6. CALCIUM CARBONATE [Concomitant]
     Dosage: UNK
  7. EXJADE [Suspect]
     Indication: MYELODYSPLASTIC SYNDROME
     Dosage: 2500 MG DAILY
     Route: 048
     Dates: start: 20110101

REACTIONS (2)
  - HAEMATOCHEZIA [None]
  - BOWEL MOVEMENT IRREGULARITY [None]
